FAERS Safety Report 21069928 (Version 3)
Quarter: 2024Q3

REPORT INFORMATION
  Report Type: Spontaneous
  Country: US (occurrence: US)
  Receive Date: 20220712
  Receipt Date: 20240722
  Transmission Date: 20241017
  Serious: No
  Sender: ASTELLAS
  Company Number: US-ASTPRD-AER-2022-009451

PATIENT
  Age: 70 Year
  Sex: Male

DRUGS (1)
  1. MYRBETRIQ [Suspect]
     Active Substance: MIRABEGRON
     Indication: Bladder disorder
     Route: 065
     Dates: start: 202202

REACTIONS (2)
  - Blood pressure increased [Recovered/Resolved]
  - Therapeutic product effect incomplete [Unknown]
